FAERS Safety Report 9988590 (Version 3)
Quarter: 2014Q2

REPORT INFORMATION
  Report Type: Spontaneous
  Country: US (occurrence: US)
  Receive Date: 20140310
  Receipt Date: 20140403
  Transmission Date: 20141212
  Serious: Yes (Other)
  Sender: FDA-Public Use
  Company Number: US-009507513-1403USA001070

PATIENT
  Age: 46 Year
  Sex: Male

DRUGS (3)
  1. TEMODAR [Suspect]
     Indication: BRAIN NEOPLASM
     Dosage: 75 MG/M2  FOR 6 WEEKS
     Route: 048
  2. TEMODAR [Suspect]
     Dosage: 150 MG/ M2
     Route: 048
  3. TEMODAR [Suspect]
     Dosage: 200 MG/ M2 ONCE FOR DAYS 1-5 OF A 28 DAYS CYCLE FOR 10 CYCLES
     Route: 048
     Dates: end: 20140114

REACTIONS (2)
  - Neoplasm recurrence [Unknown]
  - Surgery [Unknown]
